FAERS Safety Report 26020118 (Version 1)
Quarter: 2025Q4

REPORT INFORMATION
  Report Type: Spontaneous
  Country: JP (occurrence: JP)
  Receive Date: 20251110
  Receipt Date: 20251110
  Transmission Date: 20260117
  Serious: Yes (Other)
  Sender: MYLAN
  Company Number: JP-MYLANLABS-2025M1094657

PATIENT

DRUGS (12)
  1. CYCLOSPORINE [Suspect]
     Active Substance: CYCLOSPORINE
     Indication: Prophylaxis against transplant rejection
  2. CYCLOSPORINE [Suspect]
     Active Substance: CYCLOSPORINE
     Route: 065
  3. CYCLOSPORINE [Suspect]
     Active Substance: CYCLOSPORINE
     Route: 065
  4. CYCLOSPORINE [Suspect]
     Active Substance: CYCLOSPORINE
  5. GANCICLOVIR [Concomitant]
     Active Substance: GANCICLOVIR
     Indication: Cytomegalovirus infection
  6. GANCICLOVIR [Concomitant]
     Active Substance: GANCICLOVIR
     Route: 065
  7. GANCICLOVIR [Concomitant]
     Active Substance: GANCICLOVIR
     Route: 065
  8. GANCICLOVIR [Concomitant]
     Active Substance: GANCICLOVIR
  9. VALGANCICLOVIR [Concomitant]
     Active Substance: VALGANCICLOVIR
     Indication: Cytomegalovirus infection
  10. VALGANCICLOVIR [Concomitant]
     Active Substance: VALGANCICLOVIR
     Route: 065
  11. VALGANCICLOVIR [Concomitant]
     Active Substance: VALGANCICLOVIR
     Route: 065
  12. VALGANCICLOVIR [Concomitant]
     Active Substance: VALGANCICLOVIR

REACTIONS (1)
  - Drug ineffective [Unknown]
